FAERS Safety Report 6639305-2 (Version None)
Quarter: 2010Q1

REPORT INFORMATION
  Report Type: 
  Country: None (occurrence: None)
  Receive Date: 20100315
  Receipt Date: 20100225
  Transmission Date: 20100710
  Serious: Yes (Death)
  Sender: FDA-Public Use
  Company Number: 2010VX000077

PATIENT
  Age: 56 Year
  Sex: Female

DRUGS (3)
  1. DIASTAT [Suspect]
     Indication: DRUG USE FOR UNKNOWN INDICATION
  2. BETA BLOCKER [Suspect]
     Indication: DRUG USE FOR UNKNOWN INDICATION
  3. ACETAMINOPHEN [Suspect]
     Indication: DRUG USE FOR UNKNOWN INDICATION

REACTIONS (21)
  - ACIDOSIS [None]
  - ALANINE AMINOTRANSFERASE INCREASED [None]
  - ARTERIAL OCCLUSIVE DISEASE [None]
  - ARTERIOSCLEROSIS [None]
  - ASPARTATE AMINOTRANSFERASE INCREASED [None]
  - BILIRUBIN CONJUGATED INCREASED [None]
  - BLOOD BILIRUBIN INCREASED [None]
  - BLOOD CREATINE INCREASED [None]
  - BLOOD LACTIC ACID INCREASED [None]
  - BRAIN OEDEMA [None]
  - CHROMATURIA [None]
  - COMA [None]
  - HEPATIC NECROSIS [None]
  - HYPERGLYCAEMIA [None]
  - HYPOTHERMIA [None]
  - INTERNATIONAL NORMALISED RATIO INCREASED [None]
  - POISONING [None]
  - PULMONARY OEDEMA [None]
  - PULSE PRESSURE DECREASED [None]
  - PUPIL FIXED [None]
  - UNRESPONSIVE TO STIMULI [None]
